FAERS Safety Report 4284066-8 (Version None)
Quarter: 2004Q1

REPORT INFORMATION
  Report Type: 
  Country: None (occurrence: None)
  Receive Date: 20040130
  Receipt Date: 20040114
  Transmission Date: 20041129
  Serious: Yes (Hospitalization)
  Sender: FDA-Public Use
  Company Number: DSA_80439_2003

PATIENT
  Age: 22 Year
  Sex: Female
  Weight: 52.1637 kg

DRUGS (7)
  1. XYREM [Suspect]
     Indication: CATAPLEXY
     Dosage: 6 G NIGHTLY PO
     Route: 048
     Dates: start: 19991025
  2. XYREM [Suspect]
     Indication: NARCOLEPSY
     Dosage: 6 G NIGHTLY PO
     Route: 048
     Dates: start: 19991025
  3. XYREM [Suspect]
     Indication: CATAPLEXY
     Dosage: 4.5 G NIGHTLY PO
     Route: 048
     Dates: start: 19980101, end: 19991025
  4. XYREM [Suspect]
     Indication: NARCOLEPSY
     Dosage: 4.5 G NIGHTLY PO
     Route: 048
     Dates: start: 19980101, end: 19991025
  5. RITALIN [Concomitant]
  6. PROVIGIL [Concomitant]
  7. CLAFORAN [Concomitant]

REACTIONS (7)
  - EPISTAXIS [None]
  - LOSS OF CONSCIOUSNESS [None]
  - MOUTH HAEMORRHAGE [None]
  - PNEUMONIA ASPIRATION [None]
  - PYREXIA [None]
  - RESPIRATORY DEPRESSION [None]
  - VOMITING [None]
